FAERS Safety Report 17547449 (Version 1)
Quarter: 2020Q1

REPORT INFORMATION
  Report Type: Report from Study
  Country: IL (occurrence: IL)
  Receive Date: 20200317
  Receipt Date: 20200317
  Transmission Date: 20200409
  Serious: Yes (Death, Other)
  Sender: FDA-Public Use
  Company Number: IL-ROCHE-2565444

PATIENT

DRUGS (2)
  1. OBINUTUZUMAB. [Suspect]
     Active Substance: OBINUTUZUMAB
     Indication: CHRONIC LYMPHOCYTIC LEUKAEMIA
     Route: 042
  2. CHLORAMBUCIL [Suspect]
     Active Substance: CHLORAMBUCIL
     Indication: CHRONIC LYMPHOCYTIC LEUKAEMIA
     Dosage: ON DAYS 1 AND 15 OF EACH CYCLE FOR 6 CYCLES
     Route: 048

REACTIONS (30)
  - Pancytopenia [Unknown]
  - Thrombocytopenia [Unknown]
  - Pyrexia [Unknown]
  - Leukoencephalopathy [Unknown]
  - Metabolic disorder [Unknown]
  - JC virus infection [Unknown]
  - Anaemia [Unknown]
  - Fatigue [Unknown]
  - Diarrhoea [Unknown]
  - Tumour lysis syndrome [Unknown]
  - Skin reaction [Unknown]
  - Osteomyelitis [Fatal]
  - Infusion related reaction [Unknown]
  - Neurotoxicity [Unknown]
  - Atrial fibrillation [Unknown]
  - Hepatic enzyme increased [Unknown]
  - Vasculitis [Unknown]
  - Cytomegalovirus infection [Unknown]
  - Gastrointestinal haemorrhage [Fatal]
  - Asthenia [Unknown]
  - Sepsis [Fatal]
  - Febrile neutropenia [Unknown]
  - Cardiovascular disorder [Unknown]
  - Cytomegalovirus viraemia [Unknown]
  - Pneumonia [Unknown]
  - Respiratory disorder [Unknown]
  - Renal failure [Unknown]
  - Hepatitis B [Unknown]
  - Neutropenia [Unknown]
  - Musculoskeletal disorder [Unknown]
